FAERS Safety Report 5896039-X (Version None)
Quarter: 2008Q3

REPORT INFORMATION
  Report Type: 
  Country: None (occurrence: None)
  Receive Date: 20080924
  Receipt Date: 20080715
  Transmission Date: 20090109
  Serious: Yes (Hospitalization)
  Sender: FDA-Public Use
  Company Number: RU-BRISTOL-MYERS SQUIBB COMPANY-14062293

PATIENT
  Age: 67 Year
  Sex: Female

DRUGS (5)
  1. ENOXAPARIN SODIUM [Suspect]
     Indication: THROMBOSIS PROPHYLAXIS
     Dosage: 1 DOSAGE FORM = 60(UNITS NOT SPECIFIED)
     Route: 058
     Dates: start: 20080116, end: 20080124
  2. PLACEBO [Suspect]
     Indication: THROMBOSIS PROPHYLAXIS
     Dates: start: 20080116, end: 20080124
  3. CAPTOPRIL [Concomitant]
     Dates: start: 20060116
  4. CEFTRIAXONE [Concomitant]
     Dates: start: 20080115, end: 20080130
  5. DIPHENHYDRAMINE HCL [Concomitant]
     Dates: start: 20080115, end: 20080130

REACTIONS (2)
  - DEEP VEIN THROMBOSIS [None]
  - PULMONARY EMBOLISM [None]
